FAERS Safety Report 12921485 (Version 2)
Quarter: 2016Q4

REPORT INFORMATION
  Report Type: Spontaneous
  Country: US (occurrence: US)
  Receive Date: 20161108
  Receipt Date: 20161212
  Transmission Date: 20170207
  Serious: No
  Sender: FDA-Public Use
  Company Number: US-GLAXOSMITHKLINE-US2016163452

PATIENT
  Age: 91 Year

DRUGS (1)
  1. BREO ELLIPTA [Suspect]
     Active Substance: FLUTICASONE FUROATE\VILANTEROL TRIFENATATE
     Indication: PNEUMONIA
     Dosage: UNK
     Route: 055

REACTIONS (5)
  - Product preparation error [Recovered/Resolved]
  - Wrong technique in product usage process [Recovered/Resolved]
  - Accidental exposure to product packaging [Recovered/Resolved]
  - Exposure via inhalation [Recovered/Resolved]
  - Device use error [Recovered/Resolved]

NARRATIVE: CASE EVENT DATE: 20161104
